FAERS Safety Report 25755417 (Version 1)
Quarter: 2025Q3

REPORT INFORMATION
  Report Type: Spontaneous
  Country: CN (occurrence: CN)
  Receive Date: 20250903
  Receipt Date: 20250903
  Transmission Date: 20251021
  Serious: Yes (Hospitalization)
  Sender: BAYER HEALTHCARE PHARMACEUTICALS INC.
  Company Number: CN-BAYER-2025A116586

PATIENT
  Age: 63 Year
  Sex: Female
  Weight: 50 kg

DRUGS (2)
  1. ULTRAVIST [Suspect]
     Active Substance: IOPROMIDE
     Indication: Angiogram
     Route: 042
     Dates: start: 20250822, end: 20250822
  2. ULTRAVIST [Suspect]
     Active Substance: IOPROMIDE
     Indication: Carotid artery stenosis

REACTIONS (7)
  - Contrast media allergy [Recovering/Resolving]
  - Blood pressure increased [Recovering/Resolving]
  - Erythema [Recovering/Resolving]
  - Skin tightness [None]
  - Face oedema [None]
  - Hypoaesthesia [None]
  - Rash [Recovering/Resolving]

NARRATIVE: CASE EVENT DATE: 20250822
